FAERS Safety Report 25756554 (Version 2)
Quarter: 2025Q3

REPORT INFORMATION
  Report Type: Spontaneous
  Country: US (occurrence: US)
  Receive Date: 20250903
  Receipt Date: 20250909
  Transmission Date: 20251021
  Serious: No
  Sender: SANOFI AVENTIS
  Company Number: US-SANOFI-02637494

PATIENT
  Age: 35 Year
  Sex: Male

DRUGS (1)
  1. LANTUS [Suspect]
     Active Substance: INSULIN GLARGINE
     Indication: Type 1 diabetes mellitus
     Dosage: 60 IU, QD

REACTIONS (3)
  - Blood glucose decreased [Recovered/Resolved]
  - Incorrect route of product administration [Recovered/Resolved]
  - Blood glucose increased [Unknown]

NARRATIVE: CASE EVENT DATE: 20250828
